FAERS Safety Report 10475149 (Version 1)
Quarter: 2014Q3

REPORT INFORMATION
  Report Type: Spontaneous
  Country: US (occurrence: None)
  Receive Date: 20140924
  Receipt Date: 20140924
  Transmission Date: 20150326
  Serious: No
  Sender: FDA-Public Use
  Company Number: None

PATIENT
  Age: 52 Year
  Sex: Male

DRUGS (1)
  1. FORTEO [Suspect]
     Active Substance: TERIPARATIDE
     Indication: OSTEOPOROSIS
     Route: 058
     Dates: start: 20140518

REACTIONS (5)
  - Muscle spasms [None]
  - Pharyngitis [None]
  - Nephrolithiasis [None]
  - Ear infection [None]
  - Rhinitis [None]

NARRATIVE: CASE EVENT DATE: 20140520
